FAERS Safety Report 13615372 (Version 4)
Quarter: 2022Q1

REPORT INFORMATION
  Report Type: Spontaneous
  Country: US (occurrence: US)
  Receive Date: 20170606
  Receipt Date: 20220314
  Transmission Date: 20220423
  Serious: No
  Sender: FDA-Public Use
  Company Number: US-PFIZER INC-2017244309

PATIENT
  Age: 55 Year
  Sex: Male

DRUGS (4)
  1. XELJANZ [Suspect]
     Active Substance: TOFACITINIB CITRATE
     Indication: Rheumatoid arthritis
     Dosage: 15 MG, DAILY (10 MG QAM, 5 MG QPM)
     Route: 048
  2. XELJANZ [Suspect]
     Active Substance: TOFACITINIB CITRATE
     Indication: Psoriasis
     Dosage: 15 MG, DAILY, (TAKE 2 TABLETS EVERY MORNING AND 1 TABLET EVERY EVENING)
  3. XELJANZ [Suspect]
     Active Substance: TOFACITINIB CITRATE
     Indication: Eczema
     Dosage: UNK, 3X/DAY
  4. XELJANZ [Suspect]
     Active Substance: TOFACITINIB CITRATE
     Dosage: 5 MG, 1X/DAY

REACTIONS (4)
  - Off label use [Unknown]
  - Prescribed overdose [Unknown]
  - Oropharyngeal pain [Unknown]
  - Rash [Unknown]
